FAERS Safety Report 18617948 (Version 1)
Quarter: 2020Q4

REPORT INFORMATION
  Report Type: Spontaneous
  Country: IN (occurrence: IN)
  Receive Date: 20201215
  Receipt Date: 20201215
  Transmission Date: 20210114
  Serious: Yes (Hospitalization, Other)
  Sender: FDA-Public Use
  Company Number: IN-TORRENT-00002667

PATIENT
  Age: 70 Year
  Sex: Male

DRUGS (2)
  1. TELMISARTAN. [Suspect]
     Active Substance: TELMISARTAN
     Indication: HYPERTENSION
     Dosage: UNKNOWN
  2. DICLOFENAC [Interacting]
     Active Substance: DICLOFENAC
     Indication: BACK PAIN
     Dosage: UNKNOWN

REACTIONS (6)
  - Hyperkalaemia [Unknown]
  - Acute kidney injury [Unknown]
  - Nodal arrhythmia [Unknown]
  - Electrocardiogram change [Unknown]
  - Drug interaction [Unknown]
  - Syncope [Unknown]
